FAERS Safety Report 13860843 (Version 2)
Quarter: 2017Q3

REPORT INFORMATION
  Report Type: Spontaneous
  Country: US (occurrence: US)
  Receive Date: 20170811
  Receipt Date: 20170821
  Transmission Date: 20171127
  Serious: Yes (Death, Other)
  Sender: FDA-Public Use
  Company Number: US-ALEXION PHARMACEUTICALS INC.-A201709010

PATIENT
  Age: 53 Year
  Sex: Female

DRUGS (1)
  1. SOLIRIS [Suspect]
     Active Substance: ECULIZUMAB
     Indication: HAEMOLYTIC URAEMIC SYNDROME
     Dosage: 1200 MG, UNK
     Route: 042
     Dates: start: 20160227

REACTIONS (4)
  - Cardiac arrest [Fatal]
  - Arterial occlusive disease [Fatal]
  - Renal failure [Fatal]
  - Gastric disorder [Fatal]

NARRATIVE: CASE EVENT DATE: 20170808
